FAERS Safety Report 21239823 (Version 2)
Quarter: 2022Q3

REPORT INFORMATION
  Report Type: Spontaneous
  Country: US (occurrence: US)
  Receive Date: 20220822
  Receipt Date: 20220912
  Transmission Date: 20221027
  Serious: No
  Sender: FDA-Public Use
  Company Number: US-Merz Pharmaceuticals GmbH-22-02361

PATIENT
  Age: 41 Year
  Sex: Female

DRUGS (1)
  1. XEOMIN [Suspect]
     Active Substance: INCOBOTULINUMTOXINA
     Indication: Skin wrinkling
     Dates: start: 20220630, end: 20220630

REACTIONS (2)
  - Injection site pain [Recovered/Resolved]
  - Product preparation issue [Unknown]

NARRATIVE: CASE EVENT DATE: 20220101
